FAERS Safety Report 11047214 (Version 1)
Quarter: 2015Q2

REPORT INFORMATION
  Report Type: Spontaneous
  Country: CN (occurrence: CN)
  Receive Date: 20150420
  Receipt Date: 20150420
  Transmission Date: 20150821
  Serious: Yes (Hospitalization, Disabling)
  Sender: FDA-Public Use
  Company Number: CN-PFIZER INC-2015132815

PATIENT
  Age: 38 Year
  Sex: Female
  Weight: 59 kg

DRUGS (3)
  1. LIPITOR [Suspect]
     Active Substance: ATORVASTATIN CALCIUM
     Indication: GENERAL SYMPTOM
     Dosage: 20 MG, 1X/DAY
     Route: 048
     Dates: start: 20140925, end: 20141004
  2. MICARDIS [Concomitant]
     Active Substance: TELMISARTAN
     Indication: GENERAL SYMPTOM
     Dosage: 10 MG, 3X/DAY
     Route: 048
     Dates: start: 20140929, end: 20141005
  3. CEFDINIR. [Concomitant]
     Active Substance: CEFDINIR
     Indication: GENERAL SYMPTOM
     Dosage: 100 MG, 3X/DAY
     Route: 048
     Dates: start: 20140930, end: 20141005

REACTIONS (2)
  - Renal impairment [Recovering/Resolving]
  - Rash [Recovering/Resolving]

NARRATIVE: CASE EVENT DATE: 20141002
